FAERS Safety Report 8375538-5 (Version None)
Quarter: 2012Q1

REPORT INFORMATION
  Report Type: 
  Country: None (occurrence: None)
  Receive Date: 20120323
  Receipt Date: 20110601
  Transmission Date: 20120608
  Serious: Yes (Hospitalization)
  Sender: FDA-Public Use
  Company Number: 163-21880-11021232

PATIENT
  Age: 72 Year
  Sex: Male
  Weight: 87.27 kg

DRUGS (16)
  1. UROXATRAL [Concomitant]
  2. DEXAMETHASONE [Concomitant]
  3. SAW PALMETTO (SERENOA REPENS) [Concomitant]
  4. FLAXSEED (LINSEED OIL) [Concomitant]
  5. AMIODARONE HCL [Concomitant]
  6. LOVENOX [Concomitant]
  7. FISH OIL (FISH OIL) [Concomitant]
  8. ASCORBIC ACID [Concomitant]
  9. SYNTHROID [Concomitant]
  10. NEXIUM [Concomitant]
  11. REVLIMID [Suspect]
     Indication: MULTIPLE MYELOMA
     Dosage: 25 MG, 1 IN 1 D, PO, 15 MG, 1 IN 1 D, PO
     Route: 048
     Dates: start: 20110201
  12. REVLIMID [Suspect]
     Indication: MULTIPLE MYELOMA
     Dosage: 25 MG, 1 IN 1 D, PO, 15 MG, 1 IN 1 D, PO
     Route: 048
     Dates: start: 20101201
  13. VITAMIN D [Concomitant]
  14. TOPROL-XL [Concomitant]
  15. WARFARIN SODIUM [Concomitant]
  16. SIMVASTATIN [Concomitant]

REACTIONS (6)
  - THROMBOSIS [None]
  - BURNING SENSATION [None]
  - TREMOR [None]
  - OEDEMA PERIPHERAL [None]
  - PARAESTHESIA [None]
  - LACRIMATION INCREASED [None]
